FAERS Safety Report 8497420-5 (Version None)
Quarter: 2012Q3

REPORT INFORMATION
  Report Type: 
  Country: None (occurrence: None)
  Receive Date: 20120709
  Receipt Date: 20120612
  Transmission Date: 20120928
  Serious: No
  Sender: FDA-Public Use
  Company Number: US-AMGEN-USASP2011005883

PATIENT
  Age: 58 Year
  Sex: Male
  Weight: 113.38 kg

DRUGS (2)
  1. ENBREL [Suspect]
     Dosage: 50 MG, QWK
     Route: 058
     Dates: start: 20080101
  2. ENBREL [Suspect]
     Indication: PSORIATIC ARTHROPATHY
     Dosage: 50 MG, QWK
     Route: 058
     Dates: start: 20050215, end: 20110101

REACTIONS (4)
  - NASOPHARYNGITIS [None]
  - BRONCHITIS [None]
  - GLOSSITIS [None]
  - DIZZINESS [None]
